FAERS Safety Report 21190367 (Version 2)
Quarter: 2022Q3

REPORT INFORMATION
  Report Type: Spontaneous
  Country: CA (occurrence: CA)
  Receive Date: 20220809
  Receipt Date: 20220819
  Transmission Date: 20221027
  Serious: No
  Sender: FDA-Public Use
  Company Number: CA-BAXTER-2022BAX016637

PATIENT

DRUGS (1)
  1. DOBUTAMINE [Suspect]
     Active Substance: DOBUTAMINE HYDROCHLORIDE
     Dosage: AT AN INFUSION RATE OF 2.5 MCG/KG/MIN
     Route: 065
     Dates: start: 202206

REACTIONS (3)
  - Venous oxygen saturation decreased [Recovering/Resolving]
  - Device alarm issue [Unknown]
  - Product administration error [Unknown]

NARRATIVE: CASE EVENT DATE: 20220608
